FAERS Safety Report 5873220-7 (Version None)
Quarter: 2008Q3

REPORT INFORMATION
  Report Type: 
  Country: None (occurrence: None)
  Receive Date: 20080908
  Receipt Date: 20080829
  Transmission Date: 20090109
  Serious: Yes (Hospitalization)
  Sender: FDA-Public Use
  Company Number: US-JNJFOC-20080900303

PATIENT
  Sex: Female
  Weight: 86.18 kg

DRUGS (1)
  1. ORTHO TRI-CYCLEN LO [Suspect]
     Indication: CONTRACEPTION
     Route: 048

REACTIONS (4)
  - BACTERIA BLOOD IDENTIFIED [None]
  - PYREXIA [None]
  - RASH GENERALISED [None]
  - THROMBOSIS [None]
